FAERS Safety Report 12916117 (Version 1)
Quarter: 2016Q4

REPORT INFORMATION
  Report Type: Spontaneous
  Country: PT (occurrence: PT)
  Receive Date: 20161107
  Receipt Date: 20161107
  Transmission Date: 20170207
  Serious: Yes (Other)
  Sender: FDA-Public Use
  Company Number: PT-ROCHE-1848144

PATIENT
  Age: 71 Year
  Sex: Female

DRUGS (5)
  1. FLUTICASONE [Concomitant]
     Active Substance: FLUTICASONE\FLUTICASONE PROPIONATE
     Route: 065
  2. CARBOPLATIN. [Suspect]
     Active Substance: CARBOPLATIN
     Indication: OVARIAN CANCER
     Route: 065
  3. PACLITAXEL. [Suspect]
     Active Substance: PACLITAXEL
     Indication: OVARIAN CANCER
     Route: 065
  4. BEVACIZUMAB [Suspect]
     Active Substance: BEVACIZUMAB
     Indication: OVARIAN CANCER
     Dosage: START ON THE 2ND CYCLE
     Route: 065
  5. SALMETEROL [Concomitant]
     Active Substance: SALMETEROL
     Route: 065

REACTIONS (6)
  - Diaphragmatic disorder [Unknown]
  - Myalgia [Unknown]
  - Neuropathy peripheral [Unknown]
  - Stomatitis [Unknown]
  - Nausea [Unknown]
  - Hypertension [Recovering/Resolving]
